FAERS Safety Report 8596799-3 (Version None)
Quarter: 2012Q3

REPORT INFORMATION
  Report Type: 
  Country: None (occurrence: None)
  Receive Date: 20120815
  Receipt Date: 20120803
  Transmission Date: 20120928
  Serious: No
  Sender: FDA-Public Use
  Company Number: US-B.I. PHARMACEUTICALS,INC./RIDGEFIELD-2012-BP-17510BP

PATIENT
  Sex: Male

DRUGS (2)
  1. JENTADUETO [Suspect]
     Indication: DIABETES MELLITUS
     Route: 048
     Dates: start: 20120721
  2. MEDICATION NOT FURTHER SPECIFIED [Concomitant]
     Indication: DIABETES MELLITUS
     Dosage: 1 MG
     Route: 048
     Dates: start: 20120101

REACTIONS (3)
  - NIGHTMARE [None]
  - HYPERHIDROSIS [None]
  - ABNORMAL DREAMS [None]
